FAERS Safety Report 6263626-9 (Version None)
Quarter: 2009Q3

REPORT INFORMATION
  Report Type: 
  Country: None (occurrence: None)
  Receive Date: 20090710
  Receipt Date: 20090612
  Transmission Date: 20100115
  Serious: No
  Sender: FDA-Public Use
  Company Number: A0791227A

PATIENT
  Age: 27 Year
  Sex: Female

DRUGS (3)
  1. TYKERB [Suspect]
     Indication: BREAST CANCER
     Dosage: 250MG FIVE TIMES PER DAY
     Route: 048
     Dates: start: 20090604
  2. SYNTHROID [Concomitant]
  3. DEXAMETHASONE [Concomitant]
     Dosage: 1MG ALTERNATE DAYS
     Dates: end: 20090611

REACTIONS (1)
  - DIARRHOEA [None]
